FAERS Safety Report 23555902 (Version 2)
Quarter: 2024Q1

REPORT INFORMATION
  Report Type: Report from Study
  Country: BR (occurrence: BR)
  Receive Date: 20240222
  Receipt Date: 20240316
  Transmission Date: 20240410
  Serious: Yes (Other)
  Sender: FDA-Public Use
  Company Number: BR-002147023-NVSC2023BR193436

PATIENT
  Age: 59 Year
  Sex: Female
  Weight: 66 kg

DRUGS (4)
  1. KISQALI [Suspect]
     Active Substance: RIBOCICLIB
     Indication: Breast cancer
     Dosage: UNK
     Route: 065
     Dates: start: 202309
  2. KISQALI [Suspect]
     Active Substance: RIBOCICLIB
     Dosage: UNK
     Route: 065
  3. KISQALI [Suspect]
     Active Substance: RIBOCICLIB
     Dosage: UNK, BID
     Route: 048
  4. LETROZOLE [Suspect]
     Active Substance: LETROZOLE
     Indication: Breast neoplasm
     Dosage: 1 DOSAGE FORM, QD
     Route: 065
     Dates: start: 202303

REACTIONS (12)
  - Electrocardiogram QT prolonged [Recovered/Resolved]
  - Ventricular arrhythmia [Recovered/Resolved]
  - Cardiac disorder [Recovered/Resolved]
  - Abdominal pain upper [Recovering/Resolving]
  - Dyspepsia [Recovered/Resolved]
  - Fatigue [Recovered/Resolved]
  - Nausea [Recovered/Resolved]
  - Vomiting [Recovered/Resolved]
  - Asthenia [Recovered/Resolved]
  - Anaemia [Recovered/Resolved]
  - Electrocardiogram low voltage [Recovered/Resolved]
  - QRS axis abnormal [Recovered/Resolved]

NARRATIVE: CASE EVENT DATE: 20230901
